FAERS Safety Report 20632908 (Version 1)
Quarter: 2022Q1

REPORT INFORMATION
  Report Type: Spontaneous
  Country: US (occurrence: US)
  Receive Date: 20220324
  Receipt Date: 20220324
  Transmission Date: 20220423
  Serious: Yes (Other)
  Sender: FDA-Public Use
  Company Number: US-GLAXOSMITHKLINE-US2022GSK050502

PATIENT
  Sex: Male

DRUGS (4)
  1. ZANTAC [Suspect]
     Active Substance: RANITIDINE HYDROCHLORIDE
     Indication: Fatigue
     Dosage: 150 MG, OCCASIONAL
     Route: 065
     Dates: start: 201403, end: 201609
  2. ZANTAC [Suspect]
     Active Substance: RANITIDINE HYDROCHLORIDE
     Indication: Constipation
  3. ZANTAC [Suspect]
     Active Substance: RANITIDINE HYDROCHLORIDE
     Indication: Fatigue
     Dosage: 150 MG, OCCASIONAL
     Route: 065
     Dates: start: 201403, end: 201609
  4. ZANTAC [Suspect]
     Active Substance: RANITIDINE HYDROCHLORIDE
     Indication: Constipation

REACTIONS (1)
  - Hepatic cancer [Unknown]
